FAERS Safety Report 10178440 (Version 1)
Quarter: 2014Q2

REPORT INFORMATION
  Report Type: Spontaneous
  Country: JP (occurrence: JP)
  Receive Date: 20140519
  Receipt Date: 20140519
  Transmission Date: 20141212
  Serious: Yes (Death)
  Sender: FDA-Public Use
  Company Number: JP-JNJFOC-20140508861

PATIENT
  Sex: Female
  Weight: 40 kg

DRUGS (11)
  1. XARELTO [Suspect]
     Indication: ATRIAL FIBRILLATION
     Route: 048
     Dates: start: 20120611, end: 20140415
  2. XARELTO [Suspect]
     Indication: THROMBOSIS PROPHYLAXIS
     Route: 048
     Dates: start: 20120611, end: 20140415
  3. XARELTO [Suspect]
     Indication: CEREBROVASCULAR ACCIDENT PROPHYLAXIS
     Route: 048
     Dates: start: 20120611, end: 20140415
  4. TOLVAPTAN [Concomitant]
     Route: 048
     Dates: start: 20140312, end: 20140415
  5. TEMOCAPRIL HYDROCHLORIDE [Concomitant]
     Route: 048
     Dates: start: 20131107, end: 20140415
  6. MAINTATE [Concomitant]
     Route: 048
     Dates: start: 20131205, end: 20140415
  7. THEODUR [Concomitant]
     Route: 048
     Dates: start: 20120812, end: 20140415
  8. BONALON [Concomitant]
     Route: 048
     Dates: start: 20120824, end: 20140415
  9. ONBREZ [Concomitant]
     Route: 055
     Dates: start: 20121003, end: 20140415
  10. GLYCOPYRRONIUM BROMIDE [Concomitant]
     Route: 055
     Dates: start: 20130904, end: 20140415
  11. ITOROL [Concomitant]
     Route: 048
     Dates: start: 20131209, end: 20140415

REACTIONS (1)
  - Cardio-respiratory arrest [Fatal]
